FAERS Safety Report 7673356-4 (Version None)
Quarter: 2011Q3

REPORT INFORMATION
  Report Type: 
  Country: None (occurrence: None)
  Receive Date: 20110810
  Receipt Date: 20110729
  Transmission Date: 20111222
  Serious: No
  Sender: FDA-Public Use
  Company Number: US-JNJFOC-20110801283

PATIENT
  Sex: Male
  Weight: 70.31 kg

DRUGS (9)
  1. CLONAZEPAM [Concomitant]
     Indication: PANIC ATTACK
     Route: 048
  2. DURAGESIC-100 [Suspect]
     Indication: PAIN
     Route: 062
     Dates: start: 20110701
  3. FENTANYL CITRATE [Suspect]
     Indication: PAIN
     Route: 062
     Dates: end: 20110101
  4. ATENOLOL [Concomitant]
     Indication: BLOOD PRESSURE
     Route: 048
  5. ASPIRIN [Concomitant]
     Indication: CARDIAC DISORDER
     Route: 048
  6. ZOLPIDEM [Concomitant]
     Indication: SLEEP DISORDER
     Route: 048
  7. NORVASC [Concomitant]
     Indication: BLOOD PRESSURE
     Route: 048
  8. CYMBALTA [Concomitant]
     Indication: DEPRESSION
     Route: 048
  9. BUPROPION HCL [Concomitant]
     Indication: DEPRESSION
     Route: 048

REACTIONS (3)
  - PRODUCT QUALITY ISSUE [None]
  - WRONG TECHNIQUE IN DRUG USAGE PROCESS [None]
  - APPLICATION SITE ERYTHEMA [None]
